FAERS Safety Report 4438706-0 (Version None)
Quarter: 2004Q3

REPORT INFORMATION
  Report Type: 
  Country: None (occurrence: None)
  Receive Date: 20040830
  Receipt Date: 20040817
  Transmission Date: 20050211
  Serious: Yes (Hospitalization)
  Sender: FDA-Public Use
  Company Number: 2004051071

PATIENT
  Age: 8 Year
  Sex: Female

DRUGS (9)
  1. ZITHROMAX [Suspect]
     Indication: UPPER RESPIRATORY TRACT INFECTION
     Dosage: 500 MG (250 MG, 2 IN 1 D), ORAL
     Route: 048
     Dates: start: 20040727, end: 20040727
  2. IBUPROFEN [Concomitant]
  3. PREDNISONE [Concomitant]
  4. TACROLIMUS (TACROLIMUS) [Concomitant]
  5. PANTOPRAZOLE (PANTOPRAZOLE) [Concomitant]
  6. ZAFIRLUKAST (ZAFIRLUKAST) [Concomitant]
  7. FEXOFENADINE HYDROCHLORIDE [Concomitant]
  8. LEVOSALBUTAMOL (LEVOSALBUTAMOL) [Concomitant]
  9. CIMETIDINE [Concomitant]

REACTIONS (3)
  - ANAPHYLACTIC REACTION [None]
  - DRUG HYPERSENSITIVITY [None]
  - EYE SWELLING [None]
